FAERS Safety Report 9712061 (Version 5)
Quarter: 2014Q2

REPORT INFORMATION
  Report Type: Spontaneous
  Country: JP (occurrence: JP)
  Receive Date: 20131126
  Receipt Date: 20140618
  Transmission Date: 20141212
  Serious: Yes (Life-Threatening, Hospitalization, Disabling)
  Sender: FDA-Public Use
  Company Number: JP-B.I. PHARMACEUTICALS,INC./RIDGEFIELD-2013-BI-37542NB

PATIENT
  Age: 77 Year
  Sex: Female

DRUGS (11)
  1. MIRAPEX LA [Suspect]
     Indication: PARKINSON^S DISEASE
     Dosage: 3 MG
     Route: 048
     Dates: start: 20131029, end: 20131109
  2. SYMMETREL [Concomitant]
     Dosage: 225 MG
     Route: 048
     Dates: start: 20120329, end: 20131109
  3. NEODOPASOL [Concomitant]
     Route: 048
     Dates: end: 20131109
  4. DOPS [Concomitant]
     Dosage: 300 MG
     Route: 048
     Dates: start: 20121106, end: 20131109
  5. FP-OD [Concomitant]
     Dosage: 5 MG
     Route: 048
     Dates: end: 20131109
  6. COMTAN [Concomitant]
     Dosage: 300 MG
     Route: 048
     Dates: start: 20111227, end: 20131109
  7. TRERIEF [Concomitant]
     Dosage: 25 MG
     Route: 048
     Dates: start: 20130702, end: 20131109
  8. MOSAPRIDE CITRATE HYDRATE [Concomitant]
     Dosage: 15 MG
     Route: 048
     Dates: end: 20131109
  9. SENNOSIDE [Concomitant]
     Dosage: 24 MG
     Route: 048
     Dates: start: 20110125, end: 20131109
  10. ENSURE LIQUID [Concomitant]
     Dosage: 250 ML
     Route: 048
     Dates: end: 20131109
  11. MOHRUS TAPE [Concomitant]
     Route: 065

REACTIONS (3)
  - Hypoglycaemia [Recovered/Resolved with Sequelae]
  - Hepatic function abnormal [Recovered/Resolved with Sequelae]
  - Altered state of consciousness [Recovered/Resolved with Sequelae]
